FAERS Safety Report 9812540 (Version 2)
Quarter: 2014Q1

REPORT INFORMATION
  Report Type: Report from Study
  Country: BE (occurrence: BE)
  Receive Date: 20140113
  Receipt Date: 20140226
  Transmission Date: 20141002
  Serious: Yes (Hospitalization)
  Sender: FDA-Public Use
  Company Number: BE-BRISTOL-MYERS SQUIBB COMPANY-19987106

PATIENT
  Age: 78 Year
  Sex: Female

DRUGS (19)
  1. ABATACEPT [Suspect]
     Indication: RHEUMATOID ARTHRITIS
     Route: 042
     Dates: start: 20090930
  2. ACLASTA [Concomitant]
  3. MEDROL [Concomitant]
     Dosage: 1DF:2MG/J
  4. SOTALEX [Concomitant]
     Dosage: 1DFR: 4OMG 2X/J
  5. SINTROM [Concomitant]
     Dosage: 1DF: 1MG/J
  6. ASAFLOW [Concomitant]
     Dosage: 1CO
  7. AMLOR [Concomitant]
     Dosage: 1CO
  8. COVERSYL [Concomitant]
     Dosage: L/2CO,ET
  9. PERINDOPRIL [Concomitant]
     Dosage: 1X/JOUR
  10. LASIX [Concomitant]
     Dosage: 1/2CC/1 JOUR SUR 2,
  11. ELTHYRONE [Concomitant]
     Dosage: 1DF: 75 MICROG/J
  12. ACETYLCYSTEINE [Concomitant]
     Dosage: LXJ
  13. AZOPT [Concomitant]
     Dosage: AZOPT COLLYRE I GTTE CLANS CHEQUE CELL LE MATIN
  14. VITAMIN D [Concomitant]
     Dosage: D CURE IX/MOIS
  15. MOVICOL [Concomitant]
  16. CALCIUM CARBONATE [Concomitant]
     Dosage: STECCAR,1DF: 500UNITS NOS,2SACHETS/J,
  17. LOSFERRON [Concomitant]
     Dosage: LX/J
  18. DUOVENT [Concomitant]
     Dosage: AEROSOL DE DUOVENT,1X/]
  19. VFEND [Concomitant]

REACTIONS (3)
  - Hip fracture [Recovered/Resolved]
  - Fall [Recovered/Resolved]
  - Pneumothorax traumatic [Recovered/Resolved]
